FAERS Safety Report 4905525-8 (Version None)
Quarter: 2006Q1

REPORT INFORMATION
  Report Type: 
  Country: None (occurrence: None)
  Receive Date: 20060208
  Receipt Date: 20060131
  Transmission Date: 20060701
  Serious: Yes (Hospitalization)
  Sender: FDA-Public Use
  Company Number: JP-BRISTOL-MYERS SQUIBB COMPANY-13265764

PATIENT
  Age: 49 Year
  Sex: Male

DRUGS (5)
  1. TAXOL [Suspect]
     Indication: LUNG NEOPLASM MALIGNANT
     Route: 042
     Dates: start: 20051118, end: 20051118
  2. PARAPLATIN [Suspect]
     Indication: LUNG NEOPLASM MALIGNANT
     Route: 042
     Dates: start: 20051111, end: 20051111
  3. CLARITHROMYCIN [Concomitant]
     Route: 048
  4. SPELEAR [Concomitant]
     Route: 048
  5. MUCOSOLVAN [Concomitant]
     Route: 048

REACTIONS (1)
  - ILEUS PARALYTIC [None]
